FAERS Safety Report 4797988-6 (Version None)
Quarter: 2005Q3

REPORT INFORMATION
  Report Type: 
  Country: None (occurrence: None)
  Receive Date: 20050929
  Receipt Date: 20050830
  Transmission Date: 20060218
  Serious: No
  Sender: FDA-Public Use
  Company Number: 05P-163-0310026

PATIENT
  Age: 55 Year
  Sex: Male
  Weight: 100 kg

DRUGS (6)
  1. HUMIRA [Suspect]
     Indication: RHEUMATOID ARTHRITIS
     Dosage: 40 MG, SUBCUTANEOUS
     Route: 058
     Dates: start: 20050418
  2. GLIPIZIDE [Concomitant]
  3. METHOTREXATE [Concomitant]
  4. LISINOPRIL [Concomitant]
  5. SIMVASTATIN [Concomitant]
  6. FOLIC ACID [Concomitant]

REACTIONS (1)
  - BLOOD GLUCOSE INCREASED [None]
